FAERS Safety Report 10175687 (Version 6)
Quarter: 2020Q2

REPORT INFORMATION
  Report Type: Spontaneous
  Country: CA (occurrence: CA)
  Receive Date: 20140516
  Receipt Date: 20200413
  Transmission Date: 20200713
  Serious: Yes (Other)
  Sender: FDA-Public Use
  Company Number: CA-ROCHE-1397863

PATIENT
  Age: 55 Year
  Sex: Female

DRUGS (15)
  1. XOLAIR [Suspect]
     Active Substance: OMALIZUMAB
     Route: 058
     Dates: start: 20190618
  2. XOLAIR [Suspect]
     Active Substance: OMALIZUMAB
     Indication: URTICARIA
     Route: 058
     Dates: start: 20131204
  3. XOLAIR [Suspect]
     Active Substance: OMALIZUMAB
     Route: 058
     Dates: start: 20190709
  4. XOLAIR [Suspect]
     Active Substance: OMALIZUMAB
     Route: 065
     Dates: start: 20190604
  5. PREDNISONE. [Suspect]
     Active Substance: PREDNISONE
     Indication: PRODUCT USED FOR UNKNOWN INDICATION
     Route: 065
  6. XOLAIR [Suspect]
     Active Substance: OMALIZUMAB
     Route: 058
     Dates: start: 20190604
  7. XOLAIR [Suspect]
     Active Substance: OMALIZUMAB
     Indication: RASH
     Route: 058
     Dates: start: 20140108
  8. XOLAIR [Suspect]
     Active Substance: OMALIZUMAB
     Route: 058
     Dates: start: 20181029
  9. XOLAIR [Suspect]
     Active Substance: OMALIZUMAB
     Route: 058
     Dates: start: 20190205
  10. XOLAIR [Suspect]
     Active Substance: OMALIZUMAB
     Route: 058
     Dates: start: 20180131
  11. PREDNISONE. [Suspect]
     Active Substance: PREDNISONE
     Route: 065
  12. BLEXTEN [Concomitant]
     Active Substance: BILASTINE
     Dosage: 8 TABLETS PER DAY
     Route: 065
  13. XOLAIR [Suspect]
     Active Substance: OMALIZUMAB
     Route: 058
     Dates: start: 2014, end: 20140522
  14. HEPATITIS A VACCINE [Concomitant]
     Active Substance: HEPATITIS A VIRUS STRAIN HM175 ANTIGEN (FORMALDEHYDE INACTIVATED)
     Indication: PRODUCT USED FOR UNKNOWN INDICATION
     Dosage: UNK
     Route: 065
     Dates: start: 20190604
  15. ZANTAC [Concomitant]
     Active Substance: RANITIDINE HYDROCHLORIDE
     Dosage: 2 TABLETS PER DAY
     Route: 065

REACTIONS (8)
  - Rhinorrhoea [Unknown]
  - Hypersensitivity [Unknown]
  - Middle insomnia [Not Recovered/Not Resolved]
  - Product use in unapproved indication [Unknown]
  - Glaucoma [Unknown]
  - Urticaria [Unknown]
  - Dry mouth [Recovered/Resolved]
  - Sinus congestion [Unknown]

NARRATIVE: CASE EVENT DATE: 20131206
